FAERS Safety Report 7832055-6 (Version None)
Quarter: 2011Q4

REPORT INFORMATION
  Report Type: 
  Country: None (occurrence: None)
  Receive Date: 20111022
  Receipt Date: 20111012
  Transmission Date: 20120403
  Serious: Yes (Other)
  Sender: FDA-Public Use
  Company Number: AR-AMGEN-ARGSP2011014086

PATIENT
  Age: 47 Year
  Sex: Female
  Weight: 62 kg

DRUGS (5)
  1. IRON SULFATETHIAMIN COMPOUND TAB [Concomitant]
     Dosage: UNK
     Route: 048
     Dates: start: 20080101
  2. NAPROXEN [Concomitant]
     Dosage: UNK
     Route: 048
     Dates: start: 20080101
  3. ENBREL [Suspect]
     Indication: RHEUMATOID ARTHRITIS
     Dosage: 50 MG, WEEKLY
     Route: 058
     Dates: start: 20080618, end: 20100601
  4. MEPREDNISONE [Concomitant]
     Dosage: UNK
     Route: 048
     Dates: start: 20080101
  5. METHOTREXATE SODIUM [Concomitant]
     Dosage: UNK
     Route: 030
     Dates: start: 20080101

REACTIONS (3)
  - FIBROMA [None]
  - URINARY TRACT INFECTION [None]
  - VAGINAL HAEMORRHAGE [None]
